FAERS Safety Report 5385143-0 (Version None)
Quarter: 2007Q3

REPORT INFORMATION
  Report Type: 
  Country: None (occurrence: None)
  Receive Date: 20070712
  Receipt Date: 20070706
  Transmission Date: 20080115
  Serious: Yes (Other)
  Sender: FDA-Public Use
  Company Number: US-ASTRAZENECA-2007UW15897

PATIENT
  Age: 66 Year
  Sex: Female
  Weight: 86.2 kg

DRUGS (6)
  1. ARIMIDEX [Suspect]
     Indication: BREAST CANCER
     Route: 048
  2. LEVOXYL [Concomitant]
  3. ASACOL [Concomitant]
  4. ATENOLOL [Concomitant]
     Route: 048
  5. ALLEGRA [Concomitant]
  6. DIOVAN [Concomitant]

REACTIONS (3)
  - ANTINUCLEAR ANTIBODY [None]
  - ARTHRALGIA [None]
  - WEIGHT INCREASED [None]
